FAERS Safety Report 8602090-9 (Version None)
Quarter: 2012Q3

REPORT INFORMATION
  Report Type: 
  Country: None (occurrence: None)
  Receive Date: 20120817
  Receipt Date: 20120815
  Transmission Date: 20120928
  Serious: Yes (Death)
  Sender: FDA-Public Use
  Company Number: PE-PFIZER INC-2012201097

PATIENT
  Age: 59 Year
  Sex: Male

DRUGS (1)
  1. ACCUPRIL [Suspect]
     Dosage: UNK
     Route: 048

REACTIONS (1)
  - DEATH [None]
